FAERS Safety Report 5404225-8 (Version None)
Quarter: 2007Q3

REPORT INFORMATION
  Report Type: 
  Country: None (occurrence: None)
  Receive Date: 20070802
  Receipt Date: 20070725
  Transmission Date: 20080115
  Serious: Yes (Other)
  Sender: FDA-Public Use
  Company Number: BR-ASTRAZENECA-2007UW15680

PATIENT
  Age: 29 Year
  Sex: Female
  Weight: 65 kg

DRUGS (2)
  1. ZOLADEX [Suspect]
     Indication: ENDOMETRIOSIS
     Route: 058
     Dates: start: 20050101, end: 20050101
  2. ZOLADEX [Suspect]
     Route: 058
     Dates: start: 20070606

REACTIONS (4)
  - ABDOMINAL PAIN [None]
  - SWELLING [None]
  - VAGINAL HAEMORRHAGE [None]
  - WEIGHT INCREASED [None]
